FAERS Safety Report 5615118-5 (Version None)
Quarter: 2008Q1

REPORT INFORMATION
  Report Type: 
  Country: None (occurrence: None)
  Receive Date: 20080206
  Receipt Date: 20070601
  Transmission Date: 20080703
  Serious: Yes (Other)
  Sender: FDA-Public Use
  Company Number: A0653822A

PATIENT
  Age: 55 Year
  Sex: Male

DRUGS (15)
  1. ARIXTRA [Suspect]
     Indication: DEEP VEIN THROMBOSIS
     Dosage: 7.5MG PER DAY
     Route: 058
     Dates: start: 20070501, end: 20070531
  2. AMIKACIN [Concomitant]
  3. ZOSYN [Concomitant]
  4. NEXIUM [Concomitant]
  5. GUAIFENESIN [Concomitant]
  6. MAGNESIUM OXIDE [Concomitant]
  7. MULTI-VITAMIN [Concomitant]
  8. POTASSIUM CHLORIDE [Concomitant]
  9. THIAMINE [Concomitant]
  10. DOCUSATE [Concomitant]
  11. HYDROCORTISONE [Concomitant]
  12. SENNA [Concomitant]
  13. FENTANYL [Concomitant]
  14. VERSED [Concomitant]
  15. NOREPINEPHRINE [Concomitant]

REACTIONS (1)
  - CATHETER SITE HAEMORRHAGE [None]
